FAERS Safety Report 5449347-0 (Version None)
Quarter: 2007Q3

REPORT INFORMATION
  Report Type: 
  Country: None (occurrence: None)
  Receive Date: 20070907
  Receipt Date: 20070829
  Transmission Date: 20080115
  Serious: Yes (Other)
  Sender: FDA-Public Use
  Company Number: 17316

PATIENT
  Age: 1 Year
  Sex: Female

DRUGS (1)
  1. CARBOPLATIN [Suspect]
     Indication: INTRAOCULAR RETINOBLASTOMA

REACTIONS (4)
  - ACCIDENTAL NEEDLE STICK [None]
  - CELLULITIS [None]
  - CONJUNCTIVAL OEDEMA [None]
  - EYELID OEDEMA [None]
